FAERS Safety Report 11202735 (Version 1)
Quarter: 2015Q2

REPORT INFORMATION
  Report Type: Spontaneous
  Country: US (occurrence: None)
  Receive Date: 20150617
  Receipt Date: 20150617
  Transmission Date: 20150821
  Serious: Yes (Other)
  Sender: FDA-Public Use
  Company Number: None

PATIENT
  Age: 43 Year
  Sex: Female

DRUGS (1)
  1. KETOROLAC TROMETHAMINE HOSPIRA, INC. [Suspect]
     Active Substance: KETOROLAC TROMETHAMINE
     Indication: MIGRAINE
     Route: 030
     Dates: start: 20140911, end: 20140911

REACTIONS (4)
  - Injection site pain [None]
  - Pain [None]
  - Injection site irritation [None]
  - Injection site bruising [None]

NARRATIVE: CASE EVENT DATE: 20140911
